FAERS Safety Report 10056437 (Version 2)
Quarter: 2014Q2

REPORT INFORMATION
  Report Type: Spontaneous
  Country: US (occurrence: None)
  Receive Date: 20140401
  Receipt Date: 20140411
  Transmission Date: 20141212
  Serious: Yes (Other)
  Sender: FDA-Public Use
  Company Number: 2014-US-003565

PATIENT
  Age: 55 Year
  Sex: Female

DRUGS (2)
  1. XYREM [Suspect]
     Indication: PRODUCT USED FOR UNKNOWN INDICATION
     Route: 048
     Dates: start: 200509
  2. KLONOPIN [Concomitant]

REACTIONS (4)
  - Sleep apnoea syndrome [None]
  - Lung disorder [None]
  - Oxygen saturation decreased [None]
  - Weight increased [None]
